FAERS Safety Report 7540401-6 (Version None)
Quarter: 2011Q2

REPORT INFORMATION
  Report Type: 
  Country: None (occurrence: None)
  Receive Date: 20110610
  Receipt Date: 20110603
  Transmission Date: 20111010
  Serious: Yes (Death)
  Sender: FDA-Public Use
  Company Number: JP-ELI_LILLY_AND_COMPANY-JP201105007452

PATIENT
  Age: 77 Year
  Sex: Female

DRUGS (5)
  1. ALIMTA [Suspect]
     Indication: LUNG ADENOCARCINOMA
     Dosage: 690 MG, OTHER
     Route: 042
     Dates: start: 20101015, end: 20101015
  2. ZOMETA [Concomitant]
     Indication: METASTASES TO BONE
     Dosage: 4 MG, OTHER
     Route: 042
     Dates: start: 20101004, end: 20101004
  3. CISPLATIN [Concomitant]
     Indication: LUNG ADENOCARCINOMA
     Dosage: 100 MG, OTHER
     Route: 042
     Dates: start: 20101015, end: 20101015
  4. PANVITAN [Concomitant]
  5. METHYCOBAL [Concomitant]
     Dosage: 1 MG, UNK
     Route: 030

REACTIONS (1)
  - RENAL FAILURE ACUTE [None]
